FAERS Safety Report 6963940-5 (Version None)
Quarter: 2010Q3

REPORT INFORMATION
  Report Type: 
  Country: None (occurrence: None)
  Receive Date: 20100831
  Receipt Date: 20100816
  Transmission Date: 20110219
  Serious: Yes (Hospitalization, Other)
  Sender: FDA-Public Use
  Company Number: 1000015135

PATIENT
  Sex: Male
  Weight: 5.2 kg

DRUGS (2)
  1. ESCITALOPRAM OXALATE [Suspect]
     Dosage: 30 MG (30 MG, 1 IN 1 D), TRANSPLACENTAL; 30 MG (30 MG, 1 IN 1 D), TRANSMAMMARY
     Route: 064
  2. SEROQUEL [Suspect]
     Dosage: 600 MG (600 MG, 1 IN 1 D), TRANSPLACENTAL; 600 MG (600 MG, 1 IN 1 D), TRANSMAMMARY
     Route: 064

REACTIONS (11)
  - BLOOD GLUCOSE DECREASED [None]
  - BODY TEMPERATURE FLUCTUATION [None]
  - CAESAREAN SECTION [None]
  - DRUG EXPOSURE VIA BREAST MILK [None]
  - HYPERREFLEXIA [None]
  - MATERNAL DRUGS AFFECTING FOETUS [None]
  - RESPIRATORY DISORDER [None]
  - RESTLESSNESS [None]
  - SLEEP DISORDER [None]
  - TREMOR [None]
  - VOMITING [None]
